FAERS Safety Report 16236706 (Version 6)
Quarter: 2021Q3

REPORT INFORMATION
  Report Type: Report from Study
  Country: JP (occurrence: JP)
  Receive Date: 20190425
  Receipt Date: 20210812
  Transmission Date: 20211014
  Serious: Yes (Death, Hospitalization, Other)
  Sender: FDA-Public Use
  Company Number: JP-ASTELLAS-2019JP007251

PATIENT
  Age: 68 Year
  Sex: Male

DRUGS (1)
  1. ASP2215 [Suspect]
     Active Substance: GILTERITINIB
     Indication: ACUTE MYELOID LEUKAEMIA RECURRENT
     Route: 048
     Dates: start: 20190130, end: 20190418

REACTIONS (4)
  - Platelet count decreased [Not Recovered/Not Resolved]
  - Acute myeloid leukaemia recurrent [Fatal]
  - Altered state of consciousness [Recovered/Resolved]
  - Pulmonary alveolar haemorrhage [Recovering/Resolving]

NARRATIVE: CASE EVENT DATE: 20190219
